FAERS Safety Report 13092062 (Version 1)
Quarter: 2017Q1

REPORT INFORMATION
  Report Type: Report from Study
  Country: US (occurrence: US)
  Receive Date: 20170106
  Receipt Date: 20170106
  Transmission Date: 20170428
  Serious: Yes (Hospitalization)
  Sender: FDA-Public Use
  Company Number: US-EISAI MEDICAL RESEARCH-EC-2016-022817

PATIENT
  Age: 64 Year
  Sex: Male

DRUGS (1)
  1. LENVIMA [Suspect]
     Active Substance: LENVATINIB
     Indication: THYROID CANCER
     Route: 048
     Dates: start: 20161029

REACTIONS (10)
  - Fatigue [Recovering/Resolving]
  - Osteolysis [Recovering/Resolving]
  - Blood pressure increased [Recovering/Resolving]
  - Arthralgia [Unknown]
  - Pain in jaw [Recovered/Resolved]
  - Tooth infection [Recovering/Resolving]
  - Hypotension [Recovered/Resolved]
  - Dizziness [Recovered/Resolved]
  - Glossodynia [Recovering/Resolving]
  - Myalgia [Unknown]

NARRATIVE: CASE EVENT DATE: 201611
